FAERS Safety Report 9431831 (Version 1)
Quarter: 2013Q3

REPORT INFORMATION
  Report Type: Report from Study
  Country: US (occurrence: US)
  Receive Date: 20130731
  Receipt Date: 20130731
  Transmission Date: 20140515
  Serious: Yes (Other)
  Sender: FDA-Public Use
  Company Number: PHEH2013US015865

PATIENT
  Sex: Female

DRUGS (1)
  1. SIGNIFOR [Suspect]
     Dosage: 0.9, BID
     Route: 058

REACTIONS (3)
  - Foot fracture [Unknown]
  - Thrombosis [Unknown]
  - Feeling abnormal [Unknown]
